FAERS Safety Report 7808684-2 (Version None)
Quarter: 2011Q4

REPORT INFORMATION
  Report Type: 
  Country: None (occurrence: None)
  Receive Date: 20111012
  Receipt Date: 20111004
  Transmission Date: 20120403
  Serious: Yes (Hospitalization)
  Sender: FDA-Public Use
  Company Number: JP-ASTELLAS-2011JP005791

PATIENT
  Sex: Female
  Weight: 47 kg

DRUGS (6)
  1. PREDNISOLONE [Concomitant]
     Dosage: 5 MG, UID/QD
     Route: 048
     Dates: start: 20050324
  2. LIPIDIL [Concomitant]
     Dosage: 100 MG, UID/QD
     Route: 048
     Dates: start: 20071023
  3. ALENDRONATE SODIUM [Concomitant]
     Dosage: 35 MG, UID/QD
     Route: 048
     Dates: start: 20101102
  4. MUCOSTA [Concomitant]
     Dosage: 100 MG, BID
     Route: 048
     Dates: start: 20050428
  5. LEVOTHYROXINE SODIUM [Concomitant]
     Dosage: 25 UG, UID/QD
     Route: 048
     Dates: start: 20100803
  6. PROGRAF [Suspect]
     Indication: LUPUS NEPHRITIS
     Dosage: 3 MG, UID/QD
     Route: 048
     Dates: start: 20101102, end: 20110725

REACTIONS (1)
  - THROMBOTIC MICROANGIOPATHY [None]
